FAERS Safety Report 26000425 (Version 1)
Quarter: 2025Q4

REPORT INFORMATION
  Report Type: Spontaneous
  Country: US (occurrence: US)
  Receive Date: 20251105
  Receipt Date: 20251105
  Transmission Date: 20260117
  Serious: No
  Sender: ANI
  Company Number: US-ANIPHARMA-2025-US-037506

PATIENT
  Sex: Female

DRUGS (19)
  1. CORTICOTROPIN [Suspect]
     Active Substance: CORTICOTROPIN
     Indication: Otosclerosis
     Dosage: INJECT 40 UNITS (0.5ML) SUBCUTANEOUSLY TWO TIMES PER WEEK DISCARD 28
     Route: 058
  2. VANCOMYCIN HYDROCHLORIDE [Concomitant]
     Active Substance: VANCOMYCIN HYDROCHLORIDE
  3. OXERVATE [Concomitant]
     Active Substance: CENEGERMIN-BKBJ
  4. DULOXETINE HYDROCHLORIDE [Concomitant]
     Active Substance: DULOXETINE HYDROCHLORIDE
  5. AMLODIPINE BESYLATE [Concomitant]
     Active Substance: AMLODIPINE BESYLATE
  6. ROSUVASTATIN CALCIUM [Concomitant]
     Active Substance: ROSUVASTATIN CALCIUM
  7. ZIRGAN/ZIOPTAN [Concomitant]
  8. VALACYCLOVIR HYDROCHLORID [Concomitant]
  9. TYRVAYA/TRIFLURIDINE [Concomitant]
  10. TOBRAMYCIN SULFATE [Concomitant]
     Active Substance: TOBRAMYCIN SULFATE
  11. TIMOLOL MALEATE [Concomitant]
     Active Substance: TIMOLOL MALEATE
  12. SIMBRINZA [Concomitant]
     Active Substance: BRIMONIDINE TARTRATE\BRINZOLAMIDE
  13. PRILOSEC [Concomitant]
     Active Substance: OMEPRAZOLE MAGNESIUM
  14. PREDNISOLONE SODIUM PHOSP [Concomitant]
  15. POLYMYXIN B SULFATE/TRIME [Concomitant]
  16. NATACYN [Concomitant]
     Active Substance: NATAMYCIN
  17. MURO 128 [Concomitant]
     Active Substance: SODIUM CHLORIDE
  18. VITAMINS [Concomitant]
     Active Substance: VITAMINS
  19. MOXIFLOXACIN HYDROCHLORID [Concomitant]

REACTIONS (4)
  - Drug ineffective [Unknown]
  - Pruritus [Unknown]
  - Insomnia [Unknown]
  - Product use in unapproved indication [Unknown]
